FAERS Safety Report 5125899-5 (Version None)
Quarter: 2006Q4

REPORT INFORMATION
  Report Type: 
  Country: None (occurrence: None)
  Receive Date: 20061012
  Receipt Date: 20061005
  Transmission Date: 20070319
  Serious: Yes (Death)
  Sender: FDA-Public Use
  Company Number: ZA-GLAXOSMITHKLINE-B0441293A

PATIENT
  Age: 34 Year
  Sex: Female

DRUGS (4)
  1. LAMIVUDINE [Suspect]
     Indication: DRUG USE FOR UNKNOWN INDICATION
     Route: 065
  2. EFAVIRENZ [Suspect]
     Indication: DRUG USE FOR UNKNOWN INDICATION
     Route: 065
  3. STAVUDINE [Suspect]
     Indication: DRUG USE FOR UNKNOWN INDICATION
     Route: 065
  4. TENOFOVIR [Concomitant]
     Indication: DRUG USE FOR UNKNOWN INDICATION
     Route: 065

REACTIONS (6)
  - CONFUSIONAL STATE [None]
  - IMMUNE RECONSTITUTION SYNDROME [None]
  - NEUROPATHY PERIPHERAL [None]
  - NON-HODGKIN'S LYMPHOMA [None]
  - PALLOR [None]
  - PLEURAL EFFUSION [None]
